FAERS Safety Report 16647539 (Version 21)
Quarter: 2022Q2

REPORT INFORMATION
  Report Type: Spontaneous
  Country: US (occurrence: US)
  Receive Date: 20190730
  Receipt Date: 20220427
  Transmission Date: 20220721
  Serious: Yes (Hospitalization, Other)
  Sender: FDA-Public Use
  Company Number: US-PFIZER INC-2019323888

PATIENT
  Age: 53 Year
  Sex: Female
  Weight: 90 kg

DRUGS (4)
  1. PRISTIQ EXTENDED-RELEASE [Suspect]
     Active Substance: DESVENLAFAXINE SUCCINATE
     Indication: Major depression
     Dosage: 150 MG (ONE 50 MG AND ONE 100 MG), DAILY
     Route: 048
     Dates: start: 2011
  2. PRISTIQ EXTENDED-RELEASE [Suspect]
     Active Substance: DESVENLAFAXINE SUCCINATE
     Indication: Depression
     Dosage: 100 MG, TWICE A DAY
     Route: 048
  3. PRISTIQ EXTENDED-RELEASE [Suspect]
     Active Substance: DESVENLAFAXINE SUCCINATE
     Dosage: 200 MG (TWO 50 MG AND ONE 100 MG), DAILY
     Route: 048
  4. PRISTIQ EXTENDED-RELEASE [Suspect]
     Active Substance: DESVENLAFAXINE SUCCINATE
     Dosage: 200 MG A DAY (100 MG, 1 TABLET TWICE A DAY/100MG TWO IN THE MORNING EVERY DAY)
     Route: 048

REACTIONS (22)
  - Food poisoning [Unknown]
  - Loss of consciousness [Unknown]
  - Seizure [Unknown]
  - Colitis [Unknown]
  - Organ failure [Unknown]
  - Near death experience [Unknown]
  - Road traffic accident [Unknown]
  - Drug dependence [Unknown]
  - Rotator cuff syndrome [Unknown]
  - Drug ineffective [Unknown]
  - Intentional product misuse [Unknown]
  - Off label use [Unknown]
  - Head injury [Unknown]
  - Withdrawal syndrome [Unknown]
  - Therapeutic response unexpected [Unknown]
  - Nervousness [Unknown]
  - Pain [Unknown]
  - Somnolence [Unknown]
  - Fatigue [Unknown]
  - Immune system disorder [Unknown]
  - Illness [Unknown]
  - Condition aggravated [Unknown]
